FAERS Safety Report 5201620-7 (Version None)
Quarter: 2006Q4

REPORT INFORMATION
  Report Type: 
  Country: None (occurrence: None)
  Receive Date: 20061006
  Receipt Date: 20060913
  Transmission Date: 20070319
  Serious: Yes (Other)
  Sender: FDA-Public Use
  Company Number: 200613953BWH

PATIENT
  Age: 18 Year
  Sex: 0

DRUGS (1)
  1. CIPRO [Suspect]
     Indication: DRUG USE FOR UNKNOWN INDICATION
     Dosage: 500 MG, TOTAL DAILY, ORAL; SEE IMAGE
     Route: 048

REACTIONS (1)
  - MANIA [None]
